FAERS Safety Report 8149606-7 (Version None)
Quarter: 2012Q1

REPORT INFORMATION
  Report Type: 
  Country: None (occurrence: None)
  Receive Date: 20120218
  Receipt Date: 20111102
  Transmission Date: 20120608
  Serious: No
  Sender: FDA-Public Use
  Company Number: US-ALLERGAN-1114454US

PATIENT
  Age: 70 Year
  Sex: Female

DRUGS (4)
  1. BOTULINUM TOXIN TYPE A [Suspect]
     Indication: BLEPHAROSPASM
  2. KLONOPIN [Concomitant]
     Indication: MUSCLE SPASMS
     Dosage: UNK
     Route: 048
     Dates: start: 20030101
  3. BOTULINUM TOXIN TYPE A [Suspect]
     Indication: TORTICOLLIS
     Dosage: 2 BOTTLES
     Route: 030
     Dates: start: 20111012, end: 20111012
  4. BACLOFEN [Concomitant]
     Indication: MUSCLE SPASMS
     Dosage: UNK
     Route: 048

REACTIONS (6)
  - DYSPHAGIA [None]
  - OROPHARYNGEAL SPASM [None]
  - CHOKING [None]
  - INJECTION SITE PAIN [None]
  - DYSPHONIA [None]
  - SPEECH DISORDER [None]
